FAERS Safety Report 9529972 (Version 1)
Quarter: 2013Q3

REPORT INFORMATION
  Report Type: Report from Study
  Country: DE (occurrence: DE)
  Receive Date: 20130917
  Receipt Date: 20130917
  Transmission Date: 20140515
  Serious: Yes (Death, Hospitalization)
  Sender: FDA-Public Use
  Company Number: DE-ROCHE-1271479

PATIENT
  Age: 74 Year
  Sex: Male
  Weight: 98 kg

DRUGS (1)
  1. BEVACIZUMAB [Suspect]
     Indication: COLORECTAL CANCER
     Route: 042
     Dates: start: 20110308, end: 20110519

REACTIONS (5)
  - Renal failure [Fatal]
  - Disease progression [Fatal]
  - General physical health deterioration [Not Recovered/Not Resolved]
  - Hepatorenal failure [Not Recovered/Not Resolved]
  - Eating disorder [Not Recovered/Not Resolved]
